FAERS Safety Report 12660342 (Version 1)
Quarter: 2016Q3

REPORT INFORMATION
  Report Type: Spontaneous
  Country: GB (occurrence: GB)
  Receive Date: 20160817
  Receipt Date: 20160817
  Transmission Date: 20161109
  Serious: Yes (Hospitalization)
  Sender: FDA-Public Use
  Company Number: GB-PFIZER INC-2015112058

PATIENT
  Sex: Female

DRUGS (3)
  1. SODIUM CHLORIDE. [Suspect]
     Active Substance: SODIUM CHLORIDE
     Dosage: 5 TIMES WEEKLY
     Route: 058
  2. WATER FOR INJECTION [Suspect]
     Active Substance: WATER
     Dosage: 5 TIMES WEEKLY
     Route: 058
  3. DEFEROXAMINE MESILATE [Suspect]
     Active Substance: DEFEROXAMINE MESYLATE
     Dosage: 2 G, 5 TIMES WEEKLY
     Route: 058

REACTIONS (4)
  - Device leakage [Unknown]
  - Injection site mass [Unknown]
  - Unintentional medical device removal [Unknown]
  - Underdose [Unknown]

NARRATIVE: CASE EVENT DATE: 20150204
